FAERS Safety Report 4629357-3 (Version None)
Quarter: 2005Q2

REPORT INFORMATION
  Report Type: 
  Country: None (occurrence: None)
  Receive Date: 20050404
  Receipt Date: 20050321
  Transmission Date: 20051028
  Serious: Yes (Death, Other)
  Sender: FDA-Public Use
  Company Number: WAES 0503USA04288

PATIENT
  Age: 70 Year

DRUGS (6)
  1. DECADRON [Suspect]
     Indication: CENTRAL NERVOUS SYSTEM LYMPHOMA
     Dosage: 8 MG/TID PO
     Route: 048
  2. CARMUSTINE [Suspect]
     Indication: CENTRAL NERVOUS SYSTEM LYMPHOMA
     Dosage: 80 MG/M[2]/DAILY IV
     Route: 042
  3. METHOTREXATE [Suspect]
     Indication: CENTRAL NERVOUS SYSTEM LYMPHOMA
     Dosage: SEE IMAGE
     Route: 042
  4. METHOTREXATE [Suspect]
     Indication: CENTRAL NERVOUS SYSTEM LYMPHOMA
     Dosage: SEE IMAGE
     Route: 042
  5. LEUCOVORIN CALCIUM [Suspect]
     Indication: CENTRAL NERVOUS SYSTEM LYMPHOMA
  6. PROCARBAZINE [Suspect]
     Indication: CENTRAL NERVOUS SYSTEM LYMPHOMA
     Dosage: 100 MG/M[2]/DAILY PO
     Route: 048

REACTIONS (1)
  - DEMENTIA [None]
